FAERS Safety Report 23231731 (Version 1)
Quarter: 2023Q4

REPORT INFORMATION
  Report Type: Spontaneous
  Country: US (occurrence: None)
  Receive Date: 20231125
  Receipt Date: 20231125
  Transmission Date: 20240110
  Serious: Yes (Disabling, Other)
  Sender: FDA-Public Use
  Company Number: None

PATIENT
  Age: 61 Year
  Sex: Female
  Weight: 96.75 kg

DRUGS (4)
  1. RUGBY LUBRICATING DROPS [Suspect]
     Active Substance: POLYVINYL ALCOHOL
     Indication: Ophthalmologic treatment
     Dosage: OTHER QUANTITY : 1 DROP(S);?FREQUENCY : EVERY 4 HOURS;?
     Route: 047
     Dates: start: 20231010, end: 20231120
  2. UNSPECIFIED INGREDIENT [Concomitant]
     Active Substance: UNSPECIFIED INGREDIENT
  3. VITAMIN C [Concomitant]
     Active Substance: ASCORBIC ACID
  4. ADVIL [Concomitant]
     Active Substance: IBUPROFEN

REACTIONS (3)
  - Vision blurred [None]
  - Dry eye [None]
  - Eye pain [None]

NARRATIVE: CASE EVENT DATE: 20231020
